FAERS Safety Report 21434810 (Version 1)
Quarter: 2022Q4

REPORT INFORMATION
  Report Type: Spontaneous
  Country: GB (occurrence: GB)
  Receive Date: 20221010
  Receipt Date: 20221010
  Transmission Date: 20230113
  Serious: Yes (Other)
  Sender: FDA-Public Use
  Company Number: None

PATIENT
  Age: 70 Year
  Sex: Female
  Weight: 96 kg

DRUGS (8)
  1. RAMIPRIL [Suspect]
     Active Substance: RAMIPRIL
     Indication: Ill-defined disorder
     Dosage: UNK
     Route: 065
     Dates: start: 20220801
  2. AMLODIPINE [Concomitant]
     Active Substance: AMLODIPINE BESYLATE
     Indication: Ill-defined disorder
     Dosage: 1 DOSAGE FORM, QD(TAKE ONE DAILY)
     Route: 065
     Dates: start: 20220503
  3. LANSOPRAZOLE [Concomitant]
     Active Substance: LANSOPRAZOLE
     Indication: Ill-defined disorder
     Dosage: 1 DOSAGE FORM, QD(TAKE ONE ONCE DAILY)
     Route: 065
     Dates: start: 20220722, end: 20220819
  4. LEVOTHYROXINE [Concomitant]
     Active Substance: LEVOTHYROXINE
     Indication: Ill-defined disorder
     Dosage: 1 DOSAGE FORM, AM(TAKE ONE EACH MORNING)
     Route: 065
     Dates: start: 20220503
  5. NAPROXEN [Concomitant]
     Active Substance: NAPROXEN
     Indication: Ill-defined disorder
     Dosage: 1 DOSAGE FORM, BID(TAKE ONE TWICE DAILY)
     Route: 065
     Dates: start: 20220722, end: 20220805
  6. OMEPRAZOLE [Concomitant]
     Active Substance: OMEPRAZOLE
     Indication: Ill-defined disorder
     Dosage: 1 DOSAGE FORM, QD(TAKE ONE DAILY WHILST ON NAPROXEN)
     Route: 065
     Dates: start: 20221005
  7. PRAVASTATIN [Concomitant]
     Active Substance: PRAVASTATIN
     Indication: Ill-defined disorder
     Dosage: 1 DOSAGE FORM, HS(TAKE ONE AT NIGHT)
     Route: 065
     Dates: start: 20220503
  8. RAMIPRIL [Concomitant]
     Active Substance: RAMIPRIL
     Indication: Ill-defined disorder
     Dosage: 1 DOSAGE FORM, QD(TAKE ONE DAILY)
     Route: 065
     Dates: start: 20220721, end: 20221005

REACTIONS (2)
  - Hot flush [Recovered/Resolved]
  - Palpitations [Recovered/Resolved]

NARRATIVE: CASE EVENT DATE: 20220801
